FAERS Safety Report 11655501 (Version 1)
Quarter: 2015Q4

REPORT INFORMATION
  Report Type: Spontaneous
  Country: US (occurrence: US)
  Receive Date: 20151023
  Receipt Date: 20151023
  Transmission Date: 20160304
  Serious: No
  Sender: FDA-Public Use
  Company Number: US-GLAXOSMITHKLINE-US2015147950

PATIENT
  Sex: Male

DRUGS (1)
  1. NICORETTE CINNAMON SURGE [Suspect]
     Active Substance: NICOTINE
     Indication: TOBACCO USER
     Dosage: 4 MG, UNK

REACTIONS (2)
  - Product use issue [Unknown]
  - Nicotine dependence [Not Recovered/Not Resolved]
